FAERS Safety Report 12261783 (Version 1)
Quarter: 2016Q2

REPORT INFORMATION
  Report Type: Spontaneous
  Country: TR (occurrence: TR)
  Receive Date: 20160413
  Receipt Date: 20160413
  Transmission Date: 20160815
  Serious: Yes (Hospitalization)
  Sender: FDA-Public Use
  Company Number: TR-SA-2015SA053061

PATIENT
  Age: 67 Year
  Sex: Male

DRUGS (1)
  1. IMMUCYST [Suspect]
     Active Substance: BACILLUS CALMETTE-GUERIN SUBSTRAIN CONNAUGHT LIVE ANTIGEN
     Indication: BLADDER CANCER
     Route: 042
     Dates: start: 201007, end: 201007

REACTIONS (11)
  - Multiple organ dysfunction syndrome [Unknown]
  - Hypersplenism [Unknown]
  - Pancytopenia [Unknown]
  - Nausea [Unknown]
  - Disseminated Bacillus Calmette-Guerin infection [Unknown]
  - Sepsis [Unknown]
  - Fatigue [Unknown]
  - Pyrexia [Unknown]
  - Incorrect route of drug administration [Unknown]
  - Acute prerenal failure [Unknown]
  - Bone marrow failure [Unknown]
